FAERS Safety Report 10401731 (Version 1)
Quarter: 2014Q3

REPORT INFORMATION
  Report Type: Spontaneous
  Country: IT (occurrence: IT)
  Receive Date: 20140822
  Receipt Date: 20140822
  Transmission Date: 20150326
  Serious: Yes (Other)
  Sender: FDA-Public Use
  Company Number: IT-JNJFOC-20140816972

PATIENT
  Age: 21 Year
  Sex: Male
  Weight: 107 kg

DRUGS (1)
  1. HALDOL [Suspect]
     Active Substance: HALOPERIDOL
     Indication: PRODUCT USED FOR UNKNOWN INDICATION
     Route: 048
     Dates: start: 20140816, end: 20140816

REACTIONS (2)
  - Self injurious behaviour [Unknown]
  - Intentional overdose [Unknown]

NARRATIVE: CASE EVENT DATE: 20140816
